FAERS Safety Report 16649078 (Version 1)
Quarter: 2019Q3

REPORT INFORMATION
  Report Type: Spontaneous
  Country: CH (occurrence: CH)
  Receive Date: 20190730
  Receipt Date: 20190730
  Transmission Date: 20191004
  Serious: Yes (Hospitalization, Other)
  Sender: FDA-Public Use
  Company Number: CH-ASTRAZENECA-2019SF05130

PATIENT
  Age: 75 Year
  Sex: Female

DRUGS (30)
  1. TORASEMIDE [Concomitant]
     Active Substance: TORSEMIDE
     Dates: start: 20190217, end: 20190605
  2. MEDIAVEN [Concomitant]
     Active Substance: NAFTAZONE
     Dates: end: 20190528
  3. COSAAR [Suspect]
     Active Substance: LOSARTAN POTASSIUM
     Route: 065
     Dates: start: 20170427, end: 20190227
  4. CLOPIDOGREL [Concomitant]
     Active Substance: CLOPIDOGREL BISULFATE
     Dates: start: 20190213
  5. NEXIUM [Suspect]
     Active Substance: ESOMEPRAZOLE MAGNESIUM
     Route: 048
     Dates: start: 20190213
  6. COSAAR PLUS [Suspect]
     Active Substance: HYDROCHLOROTHIAZIDE\LOSARTAN
     Route: 065
     Dates: start: 20130227, end: 20170514
  7. TEMGESIC [Suspect]
     Active Substance: BUPRENORPHINE HYDROCHLORIDE
     Dosage: 0.1 MG 3 DAYS
     Route: 060
     Dates: start: 20190216, end: 20190306
  8. TORASEMIDE [Concomitant]
     Active Substance: TORSEMIDE
     Dates: start: 20130708, end: 20130722
  9. PANTOZOL [Concomitant]
     Active Substance: PANTOPRAZOLE SODIUM
     Dates: end: 20190213
  10. CALCIMAGON D3 [Concomitant]
     Active Substance: CALCIUM\CHOLECALCIFEROL
     Dates: start: 20190210
  11. DAFALGAN [Concomitant]
     Active Substance: ACETAMINOPHEN
     Dates: start: 2013
  12. FURADANTINE [Concomitant]
     Active Substance: NITROFURANTOIN
     Dates: start: 20190531, end: 20190605
  13. ZINACEF [Concomitant]
     Active Substance: CEFUROXIME SODIUM
     Dates: start: 20190207, end: 20190207
  14. CLINDAMYCIN HYDROCHLORIDE. [Concomitant]
     Active Substance: CLINDAMYCIN HYDROCHLORIDE
     Dates: start: 20130710, end: 20130802
  15. METOPROLOL. [Suspect]
     Active Substance: METOPROLOL
     Route: 065
     Dates: start: 20190311, end: 20190311
  16. LEXOTANIL [Suspect]
     Active Substance: BROMAZEPAM
     Route: 048
  17. TEMGESIC [Suspect]
     Active Substance: BUPRENORPHINE HYDROCHLORIDE
     Dosage: 0.1 MG AS NECESSARY
     Route: 060
     Dates: start: 20190519
  18. CRESTOR [Concomitant]
     Active Substance: ROSUVASTATIN CALCIUM
     Dates: start: 20190217
  19. ZINACEF [Concomitant]
     Active Substance: CEFUROXIME SODIUM
     Dates: start: 20130710, end: 20130711
  20. LISINOPRIL. [Suspect]
     Active Substance: LISINOPRIL
     Route: 048
     Dates: start: 20190315
  21. EBIXA [Suspect]
     Active Substance: MEMANTINE HYDROCHLORIDE
     Route: 048
     Dates: start: 20190304
  22. ASPIRIN CARDIO [Concomitant]
     Active Substance: ASPIRIN
     Dates: start: 20190212
  23. LEXOTANIL [Suspect]
     Active Substance: BROMAZEPAM
     Route: 048
  24. NEXIUM [Suspect]
     Active Substance: ESOMEPRAZOLE MAGNESIUM
     Route: 048
     Dates: start: 20130227, end: 20130303
  25. LEXOTANIL [Suspect]
     Active Substance: BROMAZEPAM
     Route: 048
     Dates: start: 2013
  26. TEMGESIC [Suspect]
     Active Substance: BUPRENORPHINE HYDROCHLORIDE
     Dosage: 0.1 MG 3 DAYS
     Route: 060
     Dates: start: 20130303, end: 20130328
  27. TEMGESIC [Suspect]
     Active Substance: BUPRENORPHINE HYDROCHLORIDE
     Dosage: 0.1 MG 3 DAYS
     Route: 060
     Dates: start: 20190519
  28. NITRODERM [Concomitant]
     Active Substance: NITROGLYCERIN
     Dates: start: 20130214, end: 20190611
  29. ACIDUM FOLICUM [Concomitant]
     Active Substance: FOLIC ACID
     Dates: start: 20190527, end: 20190627
  30. LAXOBERON [Concomitant]
     Active Substance: SODIUM PICOSULFATE
     Dosage: AS NECESSARY
     Dates: start: 20190527

REACTIONS (4)
  - Atrioventricular block [Recovered/Resolved]
  - Confusional state [Not Recovered/Not Resolved]
  - Hallucination, visual [Not Recovered/Not Resolved]
  - Eosinophilia [Not Recovered/Not Resolved]

NARRATIVE: CASE EVENT DATE: 2013
